FAERS Safety Report 24555725 (Version 1)
Quarter: 2024Q4

REPORT INFORMATION
  Report Type: Spontaneous
  Country: FR (occurrence: FR)
  Receive Date: 20241028
  Receipt Date: 20241028
  Transmission Date: 20250115
  Serious: Yes (Hospitalization, Other)
  Sender: ALEXION PHARMACEUTICALS
  Company Number: FR-ASTRAZENECA-202410GLO009375FR

PATIENT
  Age: 50 Year

DRUGS (12)
  1. QUETIAPINE FUMARATE [Suspect]
     Active Substance: QUETIAPINE FUMARATE
     Indication: Product used for unknown indication
     Dosage: 600 MILLIGRAM IN 1 DAY
  2. QUETIAPINE FUMARATE [Suspect]
     Active Substance: QUETIAPINE FUMARATE
     Dosage: 600 MILLIGRAM IN 1 DAY
  3. QUETIAPINE FUMARATE [Suspect]
     Active Substance: QUETIAPINE FUMARATE
     Dosage: 600 MILLIGRAM IN 1 DAY
  4. QUETIAPINE FUMARATE [Suspect]
     Active Substance: QUETIAPINE FUMARATE
     Dosage: 600 MILLIGRAM IN 1 DAY
  5. QUETIAPINE FUMARATE [Suspect]
     Active Substance: QUETIAPINE FUMARATE
     Dosage: REDUCING THE QUETIAPINE TO 50 MG IN THE EVENING AT PRESENT.
  6. QUETIAPINE FUMARATE [Suspect]
     Active Substance: QUETIAPINE FUMARATE
     Dosage: REDUCING THE QUETIAPINE TO 50 MG IN THE EVENING AT PRESENT.
  7. QUETIAPINE FUMARATE [Suspect]
     Active Substance: QUETIAPINE FUMARATE
     Dosage: REDUCING THE QUETIAPINE TO 50 MG IN THE EVENING AT PRESENT.
  8. QUETIAPINE FUMARATE [Suspect]
     Active Substance: QUETIAPINE FUMARATE
     Dosage: REDUCING THE QUETIAPINE TO 50 MG IN THE EVENING AT PRESENT.
  9. ELIQUIS [Concomitant]
     Active Substance: APIXABAN
     Indication: Cerebral venous thrombosis
     Dosage: 10 MILLIGRAM, QD
  10. ELIQUIS [Concomitant]
     Active Substance: APIXABAN
     Dosage: 10 MILLIGRAM, QD
  11. OXAZEPAM [Concomitant]
     Active Substance: OXAZEPAM
     Indication: Product used for unknown indication
     Dosage: 50 MILLIGRAM, Q8H
  12. OXAZEPAM [Concomitant]
     Active Substance: OXAZEPAM
     Dosage: 50 MILLIGRAM, Q8H

REACTIONS (1)
  - Pancreatitis acute [Recovered/Resolved]
